FAERS Safety Report 24294744 (Version 1)
Quarter: 2024Q3

REPORT INFORMATION
  Report Type: Spontaneous
  Country: US (occurrence: US)
  Receive Date: 20240906
  Receipt Date: 20240906
  Transmission Date: 20241017
  Serious: No
  Sender: PURDUE
  Company Number: US-PURDUE-USA-2024-0311804

PATIENT
  Age: 79 Year
  Sex: Male
  Weight: 106.14 kg

DRUGS (5)
  1. ACETAMINOPHEN\OXYCODONE HYDROCHLORIDE [Suspect]
     Active Substance: ACETAMINOPHEN\OXYCODONE HYDROCHLORIDE
     Indication: Pain management
     Dosage: 7.5/325 MG (FOUR TIMES A DAY)
     Route: 048
     Dates: start: 2010, end: 2018
  2. ACETAMINOPHEN\OXYCODONE HYDROCHLORIDE [Suspect]
     Active Substance: ACETAMINOPHEN\OXYCODONE HYDROCHLORIDE
     Dosage: 7.5/325 MG (FOUR TIMES A DAY)
     Route: 048
     Dates: start: 2019
  3. JARDIANCE [Concomitant]
     Active Substance: EMPAGLIFLOZIN
     Indication: Diabetes mellitus
     Dosage: 10 MILLIGRAM
     Route: 065
  4. METFORMIN [Concomitant]
     Active Substance: METFORMIN HYDROCHLORIDE
     Indication: Diabetes mellitus
     Dosage: 500 MILLIGRAM
     Route: 065
  5. GABAPENTIN [Concomitant]
     Active Substance: GABAPENTIN
     Indication: Neuropathy peripheral
     Dosage: 300 MILLIGRAM
     Route: 065

REACTIONS (3)
  - Dizziness [Not Recovered/Not Resolved]
  - Inadequate analgesia [Not Recovered/Not Resolved]
  - Product measured potency issue [Not Recovered/Not Resolved]

NARRATIVE: CASE EVENT DATE: 20240101
